FAERS Safety Report 14027539 (Version 3)
Quarter: 2017Q4

REPORT INFORMATION
  Report Type: Spontaneous
  Country: CN (occurrence: CN)
  Receive Date: 20170929
  Receipt Date: 20171212
  Transmission Date: 20180321
  Serious: Yes (Hospitalization)
  Sender: FDA-Public Use
  Company Number: CN-ROCHE-2000879

PATIENT
  Age: 57 Year
  Sex: Female
  Weight: 42 kg

DRUGS (6)
  1. HERCEPTIN [Suspect]
     Active Substance: TRASTUZUMAB
     Dosage: POWDER INJECTION
     Route: 041
     Dates: start: 20170802, end: 20170802
  2. DOCETAXEL. [Suspect]
     Active Substance: DOCETAXEL
     Route: 041
     Dates: start: 20170912, end: 20170912
  3. DOCETAXEL. [Suspect]
     Active Substance: DOCETAXEL
     Indication: BREAST CANCER
     Route: 041
     Dates: start: 20170712, end: 20170712
  4. HERCEPTIN [Suspect]
     Active Substance: TRASTUZUMAB
     Indication: BREAST CANCER
     Dosage: POWDER INJECTION
     Route: 041
     Dates: start: 20170712, end: 20170712
  5. HERCEPTIN [Suspect]
     Active Substance: TRASTUZUMAB
     Dosage: POWDER INJECTION
     Route: 041
     Dates: start: 20170912, end: 20170912
  6. DOCETAXEL. [Suspect]
     Active Substance: DOCETAXEL
     Route: 041
     Dates: start: 20170802, end: 20170802

REACTIONS (2)
  - Fatigue [Recovering/Resolving]
  - Bone marrow failure [Recovering/Resolving]

NARRATIVE: CASE EVENT DATE: 20170720
